FAERS Safety Report 4333787-7 (Version None)
Quarter: 2004Q2

REPORT INFORMATION
  Report Type: 
  Country: None (occurrence: None)
  Receive Date: 20040402
  Receipt Date: 20040319
  Transmission Date: 20050107
  Serious: Yes (Hospitalization)
  Sender: FDA-Public Use
  Company Number: T03-USA-00371-01

PATIENT
  Age: 75 Year
  Sex: Female
  Weight: 75.2971 kg

DRUGS (15)
  1. MEMANTINE (OPEN-LABEL, PHASE C) (MEMANTINE) [Suspect]
     Indication: DEMENTIA ALZHEIMER'S TYPE
     Dosage: 20 MG ONCE PO
     Route: 048
     Dates: start: 20030110
  2. MEMANTINE (OPEN LABEL, PHASE C) (MEMANTINE) [Suspect]
     Indication: DEMENTIA ALZHEIMER'S TYPE
     Dosage: 10 MG QD PO
     Route: 048
     Dates: start: 20020618, end: 20021112
  3. MEMANTINE (DOUBLE BLIND, PHASE A) (MEMANTINE) [Suspect]
     Indication: DEMENTIA ALZHEIMER'S TYPE
     Dosage: 4 TABLET QD PO
     Route: 048
     Dates: start: 20020419, end: 20020617
  4. ZYPREXA [Concomitant]
  5. ZOCOR [Concomitant]
  6. PROTONIX (PANTOPTAZOLE SODIUM) [Concomitant]
  7. CELEBREX [Concomitant]
  8. ANEMAGEN [Concomitant]
  9. LEVOXYL [Concomitant]
  10. PREMARIN (ESTROGNS CONJUGATED) [Concomitant]
  11. MEDROXYPROGESTERONE [Concomitant]
  12. ACETYLSALICYLIC ACID SRT [Concomitant]
  13. LASIX [Concomitant]
  14. ALPRAZOLAM [Concomitant]
  15. DONEPEZIL HCL [Concomitant]

REACTIONS (24)
  - ANAEMIA [None]
  - ANXIETY [None]
  - ASTHENIA [None]
  - BLOOD CHOLESTEROL INCREASED [None]
  - CHEST PAIN [None]
  - DEPRESSION [None]
  - DIZZINESS [None]
  - DYSPNOEA [None]
  - GASTRITIS [None]
  - GASTROOESOPHAGEAL REFLUX DISEASE [None]
  - HYPERTENSION [None]
  - HYPERVENTILATION [None]
  - HYPOTHYROIDISM [None]
  - IRRITABLE BOWEL SYNDROME [None]
  - MENTAL DISORDER [None]
  - MOANING [None]
  - NAUSEA [None]
  - OSTEOARTHRITIS [None]
  - OSTEOPOROSIS [None]
  - PALPITATIONS [None]
  - PANIC ATTACK [None]
  - PNEUMONIA [None]
  - PULMONARY EMBOLISM [None]
  - VOMITING [None]
